FAERS Safety Report 7792272-0 (Version None)
Quarter: 2011Q4

REPORT INFORMATION
  Report Type: 
  Country: None (occurrence: None)
  Receive Date: 20111003
  Receipt Date: 20110929
  Transmission Date: 20120403
  Serious: Yes (Hospitalization, Other)
  Sender: FDA-Public Use
  Company Number: DE-SANOFI-AVENTIS-2011SA057608

PATIENT
  Age: 61 Year
  Sex: Male
  Weight: 85 kg

DRUGS (4)
  1. METOPROLOL SUCCINATE [Suspect]
     Route: 048
     Dates: start: 20110410, end: 20110810
  2. MARCUMAR [Suspect]
     Indication: CARDIAC ABLATION
     Dosage: 7 TABLETS PER WEEK
     Route: 048
     Dates: start: 20110410, end: 20110801
  3. MULTAQ [Suspect]
     Route: 048
     Dates: start: 20110410, end: 20110721
  4. FRAXIPARIN [Concomitant]
     Route: 058
     Dates: start: 20110410

REACTIONS (8)
  - ASPARTATE AMINOTRANSFERASE INCREASED [None]
  - GAMMA-GLUTAMYLTRANSFERASE INCREASED [None]
  - BILIRUBIN CONJUGATED INCREASED [None]
  - HEPATITIS [None]
  - ATRIAL FIBRILLATION [None]
  - HEPATOCELLULAR INJURY [None]
  - ALANINE AMINOTRANSFERASE INCREASED [None]
  - BLOOD BILIRUBIN INCREASED [None]
